FAERS Safety Report 5636296-8 (Version None)
Quarter: 2008Q1

REPORT INFORMATION
  Report Type: 
  Country: None (occurrence: None)
  Receive Date: 20080220
  Receipt Date: 20080220
  Transmission Date: 20080703
  Serious: No
  Sender: FDA-Public Use
  Company Number: None

PATIENT
  Sex: Female
  Weight: 73.0291 kg

DRUGS (4)
  1. ACTIGALL [Suspect]
     Indication: HEPATIC CIRRHOSIS
     Dosage: 300 MG. QID PO
     Route: 048
     Dates: start: 20020101
  2. ACTIGALL [Suspect]
     Indication: HEPATITIS C
     Dosage: 300 MG. QID PO
     Route: 048
     Dates: start: 20020101
  3. ACTIGALL [Suspect]
     Indication: HEPATIC CIRRHOSIS
     Dosage: 300 MG. QID PO
     Route: 048
     Dates: start: 20080101
  4. ACTIGALL [Suspect]
     Indication: HEPATITIS C
     Dosage: 300 MG. QID PO
     Route: 048
     Dates: start: 20080101

REACTIONS (5)
  - BLISTER [None]
  - DYSPNOEA [None]
  - PHARMACEUTICAL PRODUCT COMPLAINT [None]
  - PRURITUS [None]
  - RASH [None]
